FAERS Safety Report 4343884-8 (Version None)
Quarter: 2004Q2

REPORT INFORMATION
  Report Type: 
  Country: None (occurrence: None)
  Receive Date: 20040421
  Receipt Date: 20040421
  Transmission Date: 20050107
  Serious: Yes (Hospitalization)
  Sender: FDA-Public Use
  Company Number: None

PATIENT
  Age: 52 Year
  Sex: Female
  Weight: 62.1 kg

DRUGS (6)
  1. TEGRETOL [Suspect]
     Indication: CONVULSION
     Dosage: 400 MG PO TID
     Route: 048
     Dates: start: 20030201
  2. FENTANYL [Concomitant]
  3. SENOKOT [Concomitant]
  4. DECADRON [Concomitant]
  5. TORECON [Concomitant]
  6. PROTONIX [Concomitant]

REACTIONS (10)
  - ASTHENIA [None]
  - CONVULSION [None]
  - DRUG LEVEL INCREASED [None]
  - FAECAL INCONTINENCE [None]
  - MENTAL STATUS CHANGES [None]
  - NAUSEA [None]
  - NEUTROPENIA [None]
  - PNEUMONIA [None]
  - STARING [None]
  - VOMITING [None]
